FAERS Safety Report 7508821-3 (Version None)
Quarter: 2011Q2

REPORT INFORMATION
  Report Type: 
  Country: None (occurrence: None)
  Receive Date: 20110519
  Receipt Date: 20110509
  Transmission Date: 20111010
  Serious: Yes (Death, Hospitalization)
  Sender: FDA-Public Use
  Company Number: TCI2010A00590

PATIENT
  Age: 67 Year
  Sex: Male

DRUGS (9)
  1. URIEF (SILODSIN) [Concomitant]
  2. ENALAPRIL MALEATE [Concomitant]
  3. ACTOS [Suspect]
     Indication: TYPE 2 DIABETES MELLITUS
     Dosage: 15 MG (15 MG, 1 D), PER ORAL
     Route: 048
     Dates: start: 20090205, end: 20101206
  4. AMARYL [Concomitant]
  5. ANTITHROMBOTIC AGENTS [Concomitant]
  6. BASEN (VOGLIBOSE) [Concomitant]
  7. AMLODIPINE BESYLATE [Concomitant]
  8. JANUVIA (SITAGLIPTIN PHOSPHATE HYDRATE) [Concomitant]
  9. BLOPRESS (CANDESARTAN CILEXETIL) [Concomitant]

REACTIONS (4)
  - FALL [None]
  - SUDDEN DEATH [None]
  - SUPRAVENTRICULAR TACHYCARDIA [None]
  - CARDIAC DEATH [None]
